FAERS Safety Report 4382398-6 (Version None)
Quarter: 2004Q2

REPORT INFORMATION
  Report Type: 
  Country: None (occurrence: None)
  Receive Date: 20040621
  Receipt Date: 20040621
  Transmission Date: 20050107
  Serious: Yes (Disabling)
  Sender: FDA-Public Use
  Company Number: None

PATIENT
  Age: 39 Year
  Sex: Female
  Weight: 102.0593 kg

DRUGS (2)
  1. EFFEXOR XR [Suspect]
     Indication: DEPRESSION
     Dosage: 150 MG DAY ORAL
     Route: 048
     Dates: start: 19980601, end: 20040101
  2. EFFEXOR XR [Suspect]
     Indication: DEPRESSION
     Dosage: 75 MG DAY ORAL
     Route: 048
     Dates: start: 20040101, end: 20040501

REACTIONS (1)
  - DRUG WITHDRAWAL SYNDROME [None]
